FAERS Safety Report 26175470 (Version 1)
Quarter: 2025Q4

REPORT INFORMATION
  Report Type: Spontaneous
  Country: US (occurrence: None)
  Receive Date: 20251218
  Receipt Date: 20251218
  Transmission Date: 20260118
  Serious: Yes (Hospitalization)
  Sender: FDA-CTU
  Company Number: None

PATIENT
  Sex: Female

DRUGS (11)
  1. LENALIDOMIDE [Suspect]
     Active Substance: LENALIDOMIDE
     Indication: Plasma cell myeloma
     Dosage: FREQUENCY : EVERY OTHER DAY;?FREQ: TAKE 1 CAPSULE BY MOUTH EVERY OTHER DAY FOR 3 WEEKS QN AND 1 WEEK OFF DURING CHEMOTHERAPY?11
     Route: 048
     Dates: start: 20250508
  2. ALBUTEROL AER HFA [Concomitant]
  3. AMLODIPINE [Concomitant]
     Active Substance: AMLODIPINE BESYLATE
  4. ASPIRIN [Concomitant]
     Active Substance: ASPIRIN
  5. ATORVASTATIN TAB 10MG [Concomitant]
  6. BREO ELLIPTA INH 100-25 [Concomitant]
  7. BUSPIRONE TAB 15MG [Concomitant]
  8. CENTRUM TAB WOMEN [Concomitant]
  9. DARZALEX SOL 100/SML [Concomitant]
  10. DEXAMETHASONE [Concomitant]
     Active Substance: DEXAMETHASONE
  11. FLUTICASONE [Concomitant]
     Active Substance: FLUTICASONE

REACTIONS (2)
  - Pneumonia [None]
  - Respiratory syncytial virus infection [None]
